APPROVED DRUG PRODUCT: STRIFON FORTE DSC
Active Ingredient: CHLORZOXAZONE
Strength: 500MG
Dosage Form/Route: TABLET;ORAL
Application: A081008 | Product #001
Applicant: FERNDALE LABORATORIES INC
Approved: Dec 23, 1988 | RLD: No | RS: No | Type: DISCN